FAERS Safety Report 5859451-0 (Version None)
Quarter: 2008Q3

REPORT INFORMATION
  Report Type: 
  Country: None (occurrence: None)
  Receive Date: 20080826
  Receipt Date: 20080826
  Transmission Date: 20090109
  Serious: Yes (Other)
  Sender: FDA-Public Use
  Company Number: None

PATIENT
  Sex: Male
  Weight: 105.8 kg

DRUGS (1)
  1. VORICONAZOLE [Suspect]
     Dates: start: 20080716, end: 20080730

REACTIONS (1)
  - ABNORMAL DREAMS [None]
